FAERS Safety Report 25676314 (Version 1)
Quarter: 2025Q3

REPORT INFORMATION
  Report Type: Report from Study
  Country: GB (occurrence: GB)
  Receive Date: 20250813
  Receipt Date: 20250813
  Transmission Date: 20251021
  Serious: Yes (Other)
  Sender: NORDIC PHARMA
  Company Number: GB-AMGEN-GBRSL2025143680

PATIENT
  Age: 60 Year
  Sex: Male

DRUGS (2)
  1. METHOTREXATE [Suspect]
     Active Substance: METHOTREXATE
     Indication: Product used for unknown indication
     Route: 065
  2. ADALIMUMAB [Concomitant]
     Active Substance: ADALIMUMAB
     Indication: Rheumatoid arthritis
     Dosage: 40 MILLIGRAM, Q2WK
     Route: 065
     Dates: start: 20250717

REACTIONS (9)
  - Loss of consciousness [Unknown]
  - Fatigue [Unknown]
  - Back pain [Unknown]
  - Pain in extremity [Recovered/Resolved]
  - Malaise [Unknown]
  - Sinus disorder [Unknown]
  - Palpitations [Recovered/Resolved]
  - Euphoric mood [Unknown]
  - Feeling abnormal [Recovered/Resolved]

NARRATIVE: CASE EVENT DATE: 20250701
